FAERS Safety Report 24612543 (Version 2)
Quarter: 2024Q4

REPORT INFORMATION
  Report Type: Report from Study
  Country: US (occurrence: US)
  Receive Date: 20241113
  Receipt Date: 20241125
  Transmission Date: 20250115
  Serious: Yes (Other)
  Sender: ARGENX BVBA
  Company Number: US-ARGENX-2024-ARGX-US009873

PATIENT

DRUGS (3)
  1. VYVGART HYTRULO [Suspect]
     Active Substance: EFGARTIGIMOD ALFA\HYALURONIDASE-QVFC
     Indication: Myasthenia gravis
     Dosage: 1008 MG (1008MG/11200 UNIT SDV 5.6ML), 1/WEEK
     Route: 058
  2. DIPHENHYDRAMINE HYDROCHLORIDE [Concomitant]
     Active Substance: DIPHENHYDRAMINE HYDROCHLORIDE
     Indication: Product used for unknown indication
     Route: 065
  3. EPINEPHRINE [Concomitant]
     Active Substance: EPINEPHRINE
     Indication: Product used for unknown indication
     Route: 065

REACTIONS (8)
  - Choking [Unknown]
  - Blood pressure increased [Unknown]
  - Erythema [Unknown]
  - Eyelid ptosis [Unknown]
  - Diplopia [Unknown]
  - Inappropriate schedule of product administration [Unknown]
  - Fatigue [Unknown]
  - Drug ineffective [Unknown]

NARRATIVE: CASE EVENT DATE: 20241101
